FAERS Safety Report 9254521 (Version 1)
Quarter: 2013Q2

REPORT INFORMATION
  Report Type: Spontaneous
  Country: IT (occurrence: IT)
  Receive Date: 20130425
  Receipt Date: 20130425
  Transmission Date: 20140414
  Serious: Yes (Hospitalization)
  Sender: FDA-Public Use
  Company Number: IT-ABBOTT-13X-083-1080562-00

PATIENT
  Age: 17 Year
  Sex: Female

DRUGS (3)
  1. DEPAKIN [Suspect]
     Indication: DEPRESSION
     Route: 048
  2. DEPAKIN [Suspect]
     Route: 048
     Dates: start: 20130311, end: 20130311
  3. SODIUM VALPROATE [Concomitant]
     Indication: PRODUCT USED FOR UNKNOWN INDICATION
     Dates: start: 20130306, end: 20130311

REACTIONS (2)
  - Drug abuse [Unknown]
  - Somnolence [Recovering/Resolving]
